FAERS Safety Report 7123945-0 (Version None)
Quarter: 2010Q4

REPORT INFORMATION
  Report Type: 
  Country: None (occurrence: None)
  Receive Date: 20101126
  Receipt Date: 20101116
  Transmission Date: 20110411
  Serious: Yes (Hospitalization)
  Sender: FDA-Public Use
  Company Number: CH-PFIZER INC-2010150223

PATIENT
  Age: 52 Year
  Sex: Female
  Weight: 92 kg

DRUGS (9)
  1. CARDULAR [Suspect]
     Indication: HYPERTENSION
     Dosage: 4 MG/DAY
     Route: 048
     Dates: start: 20100203
  2. RASILEZ [Suspect]
     Indication: HYPERTENSION
     Dosage: 300 MG, DAILY
     Route: 048
     Dates: start: 20090219
  3. FALITHROM [Suspect]
     Indication: ATRIAL FIBRILLATION
     Dosage: 5 MG/DAY
     Route: 048
     Dates: start: 20090630
  4. CARMEN [Suspect]
     Indication: HYPERTENSION
     Dosage: 20 MG/DAY
     Route: 048
     Dates: start: 20090630
  5. LISIHEXAL [Suspect]
     Indication: HYPERTENSION
     Dosage: 20 MG/DAY
     Route: 048
     Dates: start: 20080306
  6. METOHEXAL [Suspect]
     Indication: HYPERTENSION
     Dosage: 95 MG/DAY
     Route: 048
     Dates: start: 20081013
  7. DIGITOXIN TAB [Suspect]
     Indication: CARDIAC FAILURE
     Dosage: 0.07 MG/DAY
     Route: 048
     Dates: start: 20091227
  8. ASS [Suspect]
     Indication: ATRIAL FIBRILLATION
     Dosage: UNK
     Route: 048
     Dates: start: 20091227
  9. SPIRONOLACTONE [Concomitant]
     Indication: CARDIAC FAILURE
     Dosage: 12.5 MG/DAY
     Dates: start: 20100101

REACTIONS (4)
  - ATRIAL FIBRILLATION [None]
  - CARDIAC FAILURE [None]
  - EPISTAXIS [None]
  - HYPERTENSIVE CRISIS [None]
